FAERS Safety Report 24972932 (Version 2)
Quarter: 2025Q1

REPORT INFORMATION
  Report Type: Report from Study
  Country: US (occurrence: US)
  Receive Date: 20250215
  Receipt Date: 20250224
  Transmission Date: 20250409
  Serious: No
  Sender: ABBVIE
  Company Number: US-ABBVIE-6132009

PATIENT
  Age: 19 Year
  Sex: Male

DRUGS (2)
  1. SKYRIZI [Suspect]
     Active Substance: RISANKIZUMAB-RZAA
     Indication: Crohn^s disease
     Route: 058
     Dates: start: 20250208
  2. SKYRIZI [Suspect]
     Active Substance: RISANKIZUMAB-RZAA
     Indication: Crohn^s disease
     Dosage: FORM STRENGTH: 600 MILLIGRAM. LAST ADMIN DATE: 2024
     Route: 042
     Dates: start: 202408

REACTIONS (5)
  - Injection site papule [Unknown]
  - Injection site swelling [Unknown]
  - Device issue [Unknown]
  - Injection site swelling [Unknown]
  - Injection site papule [Unknown]

NARRATIVE: CASE EVENT DATE: 20250208
